FAERS Safety Report 19032775 (Version 1)
Quarter: 2021Q1

REPORT INFORMATION
  Report Type: Spontaneous
  Country: US (occurrence: US)
  Receive Date: 20210319
  Receipt Date: 20210319
  Transmission Date: 20210420
  Serious: No
  Sender: FDA-Public Use
  Company Number: US-GLAXOSMITHKLINE-USCH2021013911

PATIENT
  Age: 55 Year
  Sex: Female

DRUGS (2)
  1. ADVIL DUAL ACTION WITH ACETAMINOPHEN [Suspect]
     Active Substance: ACETAMINOPHEN\IBUPROFEN
     Indication: PAIN
  2. EXCEDRIN EXTRA STRENGTH [Suspect]
     Active Substance: ACETAMINOPHEN\ASPIRIN\CAFFEINE
     Indication: PAIN

REACTIONS (8)
  - Product use issue [Unknown]
  - Chest pain [Unknown]
  - Tremor [Unknown]
  - Nausea [Unknown]
  - Abdominal discomfort [Unknown]
  - Hypersensitivity [Unknown]
  - Dyspepsia [Unknown]
  - Drug ineffective [Unknown]
